FAERS Safety Report 20448211 (Version 5)
Quarter: 2022Q3

REPORT INFORMATION
  Report Type: Report from Study
  Country: US (occurrence: US)
  Receive Date: 20220209
  Receipt Date: 20220902
  Transmission Date: 20221026
  Serious: Yes (Hospitalization, Other)
  Sender: FDA-Public Use
  Company Number: US-NOVARTISPH-NVSC2022US027359

PATIENT
  Age: 63 Year
  Sex: Male

DRUGS (2)
  1. COSENTYX [Suspect]
     Active Substance: SECUKINUMAB
     Indication: Ankylosing spondylitis
     Dosage: 150 MG, (ONCE A WEEK FOR 5 WEEKS AND THEN Q4 WEEKS)
     Route: 058
  2. REMICADE [Concomitant]
     Active Substance: INFLIXIMAB
     Indication: Product used for unknown indication
     Dosage: UNK (NIGHT AND DAY)
     Route: 065

REACTIONS (7)
  - Seizure [Unknown]
  - Hypoaesthesia [Unknown]
  - Muscle spasms [Unknown]
  - Dizziness [Unknown]
  - Discomfort [Unknown]
  - Condition aggravated [Unknown]
  - Drug ineffective [Not Recovered/Not Resolved]

NARRATIVE: CASE EVENT DATE: 20220123
